APPROVED DRUG PRODUCT: GLIPIZIDE
Active Ingredient: GLIPIZIDE
Strength: 5MG
Dosage Form/Route: TABLET;ORAL
Application: A074305 | Product #001
Applicant: AIPING PHARMACEUTICAL INC
Approved: Apr 7, 1995 | RLD: No | RS: No | Type: DISCN